FAERS Safety Report 5257317-0 (Version None)
Quarter: 2007Q1

REPORT INFORMATION
  Report Type: 
  Country: None (occurrence: None)
  Receive Date: 20070302
  Receipt Date: 20070221
  Transmission Date: 20070707
  Serious: Yes (Hospitalization)
  Sender: FDA-Public Use
  Company Number: E3810-00238-CLI-US

PATIENT
  Age: 57 Year
  Sex: Female
  Weight: 145 kg

DRUGS (20)
  1. RABEPRAZOLE SODIUM [Suspect]
     Indication: DYSPEPSIA
     Dosage: 1 TABLET, ORAL
     Route: 048
     Dates: start: 20060515, end: 20060911
  2. PREDNISONE TAB [Concomitant]
  3. GAVISCON [Concomitant]
  4. PLAVIX [Concomitant]
  5. LEXAPRO [Concomitant]
  6. SYNTHROID [Concomitant]
  7. NAPROSYN [Concomitant]
  8. SINGULAIR [Concomitant]
  9. L-LYSINE (LYSINE) [Concomitant]
  10. TOPAMAX [Concomitant]
  11. MEVLOR (LOVASTATIN) [Concomitant]
  12. STEROID (STEROID ANTIBACTERIALS) [Concomitant]
  13. TRIGGER POINT INJECTIONS (RANTIDINE HYDROCHLORIDE) [Concomitant]
  14. DETROL  (TOLTERIDINE L-TARTRATE) [Concomitant]
  15. MORPHINE [Concomitant]
  16. PEPCID [Concomitant]
  17. XOPENEX [Concomitant]
  18. BLACK COHOSH (CIMICIFUGA RACEMOSA ROOT) [Concomitant]
  19. PROVENTIL INHALER (SALBUTAMOL) [Concomitant]
  20. DARVOCET N (PROPACET) [Concomitant]

REACTIONS (4)
  - BACK PAIN [None]
  - CONDITION AGGRAVATED [None]
  - INTERVERTEBRAL DISC PROTRUSION [None]
  - ROAD TRAFFIC ACCIDENT [None]
